FAERS Safety Report 17894653 (Version 1)
Quarter: 2020Q2

REPORT INFORMATION
  Report Type: Spontaneous
  Country: US (occurrence: US)
  Receive Date: 20200612
  Receipt Date: 20200612
  Transmission Date: 20200714
  Serious: Yes (Other)
  Sender: FDA-Public Use
  Company Number: None

PATIENT
  Age: 75 Year
  Sex: Male
  Weight: 57.6 kg

DRUGS (16)
  1. VITAMIN C [Concomitant]
     Active Substance: ASCORBIC ACID
  2. FISH OIL [Concomitant]
     Active Substance: FISH OIL
  3. IRON [Concomitant]
     Active Substance: IRON
  4. HUMALOG [Concomitant]
     Active Substance: INSULIN LISPRO
  5. SUMATRIPTAN. [Concomitant]
     Active Substance: SUMATRIPTAN
  6. SAW PALMETTO [Concomitant]
     Active Substance: HERBALS\SAW PALMETTO
  7. OXYCODONE [Concomitant]
     Active Substance: OXYCODONE
  8. CALCIUM [Concomitant]
     Active Substance: CALCIUM
  9. PROLIA [Suspect]
     Active Substance: DENOSUMAB
     Indication: OSTEOPOROSIS
     Route: 030
     Dates: start: 20191120, end: 20200420
  10. LISINOPRIL. [Concomitant]
     Active Substance: LISINOPRIL
  11. INSULIN PUMP [Concomitant]
     Active Substance: INSULIN NOS
  12. EZETIMIBE. [Concomitant]
     Active Substance: EZETIMIBE
  13. ALFUZOSIN [Concomitant]
     Active Substance: ALFUZOSIN
  14. ALPRAZOLAM. [Concomitant]
     Active Substance: ALPRAZOLAM
  15. VITAMIN A [Concomitant]
     Active Substance: VITAMIN A
  16. IBUPROFEN. [Concomitant]
     Active Substance: IBUPROFEN

REACTIONS (5)
  - Malocclusion [None]
  - Bone loss [None]
  - Noninfective gingivitis [None]
  - Pathogen resistance [None]
  - Loose tooth [None]

NARRATIVE: CASE EVENT DATE: 20200301
